FAERS Safety Report 9777972 (Version 1)
Quarter: 2013Q4

REPORT INFORMATION
  Report Type: Spontaneous
  Country: FR (occurrence: FR)
  Receive Date: 20131223
  Receipt Date: 20131223
  Transmission Date: 20140711
  Serious: Yes (Hospitalization)
  Sender: FDA-Public Use
  Company Number: FR-GE HEALTHCARE MEDICAL DIAGNOSTICS-VISP-PR-1312S-0987

PATIENT
  Age: 77 Year
  Sex: Male

DRUGS (10)
  1. VISIPAQUE [Suspect]
     Indication: ANGINA UNSTABLE
     Dosage: DOSE NOT REPORTED
     Route: 042
     Dates: start: 20121106, end: 20121106
  2. VISIPAQUE [Suspect]
     Indication: DIAGNOSTIC PROCEDURE
  3. SINTROM [Concomitant]
     Route: 048
  4. LEVOTHYROX [Concomitant]
     Route: 048
  5. FLUDEX [Concomitant]
     Route: 048
  6. ISOPTINE [Concomitant]
     Route: 048
  7. KARDEGIC [Concomitant]
     Route: 048
  8. PLAVIX [Concomitant]
     Route: 048
  9. TAHOR [Concomitant]
     Route: 048
  10. SERETIDE DISKUS [Concomitant]
     Route: 055

REACTIONS (2)
  - Drug reaction with eosinophilia and systemic symptoms [Recovered/Resolved with Sequelae]
  - Renal failure acute [Recovered/Resolved with Sequelae]
